FAERS Safety Report 22021752 (Version 2)
Quarter: 2023Q1

REPORT INFORMATION
  Report Type: Spontaneous
  Country: GB (occurrence: GB)
  Receive Date: 20230222
  Receipt Date: 20230323
  Transmission Date: 20230418
  Serious: Yes (Disabling, Other)
  Sender: FDA-Public Use
  Company Number: GB-MHRA-MED-202302111621066040-RQMSP

PATIENT
  Age: 51 Year
  Sex: Male
  Weight: 86 kg

DRUGS (3)
  1. CIPROFLOXACIN [Suspect]
     Active Substance: CIPROFLOXACIN
     Indication: Prostatitis
     Dosage: 500 MG TWICE A DAY
     Dates: start: 20230102, end: 20230120
  2. CIPROFLOXACIN [Suspect]
     Active Substance: CIPROFLOXACIN
     Dates: start: 201905, end: 201905
  3. OFLOXACIN [Suspect]
     Active Substance: OFLOXACIN
     Indication: Prostatitis
     Dates: start: 20230125, end: 20230127

REACTIONS (10)
  - Disturbance in attention [Recovered/Resolved]
  - Exercise tolerance decreased [Not Recovered/Not Resolved]
  - Memory impairment [Recovering/Resolving]
  - Muscular weakness [Unknown]
  - Malaise [Recovered/Resolved]
  - Myalgia [Not Recovered/Not Resolved]
  - Arthralgia [Not Recovered/Not Resolved]
  - Paraesthesia [Recovering/Resolving]
  - Fatigue [Not Recovered/Not Resolved]
  - Hypoaesthesia [Unknown]

NARRATIVE: CASE EVENT DATE: 20230117
